FAERS Safety Report 9197981 (Version 1)
Quarter: 2013Q1

REPORT INFORMATION
  Report Type: Spontaneous
  Country: ES (occurrence: ES)
  Receive Date: 20130328
  Receipt Date: 20130328
  Transmission Date: 20140127
  Serious: Yes (Hospitalization)
  Sender: FDA-Public Use
  Company Number: ES-GE HEALTHCARE MEDICAL DIAGNOSTICS-VISP-E2B_00000016

PATIENT
  Age: 66 Year
  Sex: Male
  Weight: 67 kg

DRUGS (5)
  1. VISIPAQUE [Suspect]
     Indication: PRODUCT USED FOR UNKNOWN INDICATION
     Dosage: DOSE NOT REPORTED
     Route: 013
     Dates: start: 20121019, end: 20121019
  2. VISIPAQUE [Suspect]
     Indication: DIAGNOSTIC PROCEDURE
  3. HYDROCHLORTIAZIDE [Concomitant]
     Route: 048
     Dates: start: 20121019, end: 20121022
  4. CARVEDILOL [Concomitant]
     Route: 048
     Dates: start: 20121019
  5. LOSARTAN [Concomitant]
     Route: 048
     Dates: start: 20121019

REACTIONS (2)
  - Eosinophilia [Recovered/Resolved]
  - Renal failure acute [Recovered/Resolved with Sequelae]
